FAERS Safety Report 4806125-0 (Version None)
Quarter: 2005Q4

REPORT INFORMATION
  Report Type: 
  Country: None (occurrence: None)
  Receive Date: 20051019
  Receipt Date: 20051019
  Transmission Date: 20060501
  Serious: Yes (Other)
  Sender: FDA-Public Use
  Company Number: None

PATIENT
  Sex: Female

DRUGS (2)
  1. OXYCONTIN [Suspect]
     Indication: ARTHRALGIA
     Dosage: 80MG  ONE QD BID
  2. OXYCONTIN [Suspect]
     Indication: BACK PAIN
     Dosage: 80MG  ONE QD BID

REACTIONS (1)
  - NAUSEA [None]
